FAERS Safety Report 4863326-3 (Version None)
Quarter: 2005Q4

REPORT INFORMATION
  Report Type: 
  Country: None (occurrence: None)
  Receive Date: 20051219
  Receipt Date: 20051201
  Transmission Date: 20060501
  Serious: Yes (Other)
  Sender: FDA-Public Use
  Company Number: 2004BL009012

PATIENT
  Age: 62 Year
  Sex: Male
  Weight: 105 kg

DRUGS (6)
  1. FLUOCINOLONE ACETONIDE [Suspect]
     Indication: CHOROIDITIS
     Dosage: LEFT EYE
     Dates: start: 20021130
  2. ALPHAGAN [Concomitant]
  3. TRUSOPT [Concomitant]
  4. DIAMOX [Concomitant]
  5. XALATAN [Concomitant]
  6. LOPIDINE [Concomitant]

REACTIONS (4)
  - INTRAOCULAR PRESSURE INCREASED [None]
  - MACULAR HOLE [None]
  - VISUAL ACUITY REDUCED [None]
  - VITREOUS DETACHMENT [None]
